FAERS Safety Report 8176948-1 (Version None)
Quarter: 2012Q1

REPORT INFORMATION
  Report Type: 
  Country: None (occurrence: None)
  Receive Date: 20120301
  Receipt Date: 20120224
  Transmission Date: 20120608
  Serious: Yes (Other)
  Sender: FDA-Public Use
  Company Number: JP-PFIZER INC-2011307960

PATIENT
  Age: 60 Year
  Sex: Male
  Weight: 62 kg

DRUGS (2)
  1. LYRICA [Suspect]
     Dosage: 75 MG, 2X/DAY
     Route: 048
     Dates: start: 20111003, end: 20111202
  2. LYRICA [Suspect]
     Indication: NEURALGIA
     Dosage: 75 MG, 1X/DAY
     Route: 048
     Dates: start: 20110927, end: 20111002

REACTIONS (3)
  - TINNITUS [None]
  - INNER EAR INFLAMMATION [None]
  - DEAFNESS [None]
